FAERS Safety Report 12098897 (Version 1)
Quarter: 2016Q1

REPORT INFORMATION
  Report Type: Spontaneous
  Country: US (occurrence: US)
  Receive Date: 20160222
  Receipt Date: 20160222
  Transmission Date: 20160526
  Serious: No
  Sender: FDA-Public Use
  Company Number: US-TEVA-589688USA

PATIENT
  Sex: Female
  Weight: 61.29 kg

DRUGS (1)
  1. ALENDRONIC ACID [Suspect]
     Active Substance: ALENDRONIC ACID
     Indication: OSTEOPOROSIS
     Route: 065
     Dates: start: 201404

REACTIONS (3)
  - Abdominal distension [Unknown]
  - Nervousness [Unknown]
  - Flatulence [Unknown]
